FAERS Safety Report 19960191 (Version 4)
Quarter: 2021Q4

REPORT INFORMATION
  Report Type: Report from Study
  Country: US (occurrence: US)
  Receive Date: 20211015
  Receipt Date: 20211103
  Transmission Date: 20220304
  Serious: Yes (Hospitalization, Other)
  Sender: FDA-Public Use
  Company Number: US-SA-SAC20211013001043

PATIENT
  Sex: Female

DRUGS (2)
  1. ISATUXIMAB [Suspect]
     Active Substance: ISATUXIMAB
     Indication: Plasma cell myeloma
     Dosage: 20 MG/KG
     Route: 042
  2. ISATUXIMAB [Suspect]
     Active Substance: ISATUXIMAB
     Dosage: 20 MG/KG, QW
     Route: 042
     Dates: start: 20210108, end: 20210108

REACTIONS (2)
  - Urinary tract infection [Recovered/Resolved]
  - Pneumonia [Recovered/Resolved]

NARRATIVE: CASE EVENT DATE: 20211008
